FAERS Safety Report 25906246 (Version 1)
Quarter: 2025Q4

REPORT INFORMATION
  Report Type: Spontaneous
  Country: SA (occurrence: SA)
  Receive Date: 20251010
  Receipt Date: 20251010
  Transmission Date: 20260117
  Serious: Yes (Other)
  Sender: ELI LILLY AND COMPANY
  Company Number: SA-ELI_LILLY_AND_COMPANY-SA202510003859

PATIENT
  Age: 88 Year
  Sex: Male

DRUGS (4)
  1. PIRTOBRUTINIB [Suspect]
     Active Substance: PIRTOBRUTINIB
     Indication: Mantle cell lymphoma
     Dosage: 200 MG, DAILY
     Route: 048
  2. PIRTOBRUTINIB [Suspect]
     Active Substance: PIRTOBRUTINIB
     Dosage: 200 MG, DAILY
     Route: 048
  3. ACALABRUTINIB [Suspect]
     Active Substance: ACALABRUTINIB
     Indication: Mantle cell lymphoma
     Dosage: UNK UNK, UNKNOWN
     Route: 065
  4. VENETOCLAX [Suspect]
     Active Substance: VENETOCLAX
     Indication: Mantle cell lymphoma
     Dosage: UNK UNK, UNKNOWN
     Route: 065

REACTIONS (1)
  - Organising pneumonia [Recovering/Resolving]
